FAERS Safety Report 6662865-2 (Version None)
Quarter: 2010Q2

REPORT INFORMATION
  Report Type: 
  Country: None (occurrence: None)
  Receive Date: 20100401
  Receipt Date: 20100318
  Transmission Date: 20101027
  Serious: Yes (Hospitalization, Other)
  Sender: FDA-Public Use
  Company Number: US-RANBAXY-2010US-32624

PATIENT

DRUGS (1)
  1. VERAPAMIL [Suspect]
     Indication: COMPLICATED MIGRAINE
     Dosage: 4.8 G, EXTENDED RELEASE
     Route: 048

REACTIONS (10)
  - ANURIA [None]
  - CARDIOTOXICITY [None]
  - DRUG TOXICITY [None]
  - GRAND MAL CONVULSION [None]
  - ILEUS PARALYTIC [None]
  - OFF LABEL USE [None]
  - OVERDOSE [None]
  - PULMONARY OEDEMA [None]
  - RENAL FAILURE [None]
  - SUICIDE ATTEMPT [None]
